FAERS Safety Report 21530269 (Version 1)
Quarter: 2022Q4

REPORT INFORMATION
  Report Type: Spontaneous
  Country: US (occurrence: None)
  Receive Date: 20221028
  Receipt Date: 20221028
  Transmission Date: 20230113
  Serious: Yes (Other)
  Sender: FDA-Public Use
  Company Number: None

PATIENT
  Sex: 0

DRUGS (1)
  1. AUBAGIO [Suspect]
     Active Substance: TERIFLUNOMIDE

REACTIONS (9)
  - Fall [None]
  - Urinary tract infection [None]
  - Pollakiuria [None]
  - Insomnia [None]
  - Visual impairment [None]
  - Nasal injury [None]
  - Skin ulcer [None]
  - Renal mass [None]
  - Wheelchair user [None]
